FAERS Safety Report 10706435 (Version 1)
Quarter: 2015Q1

REPORT INFORMATION
  Report Type: Spontaneous
  Country: FR (occurrence: None)
  Receive Date: 20150109
  Receipt Date: 20150109
  Transmission Date: 20150721
  Serious: Yes (Other)
  Sender: FDA-Public Use
  Company Number: 8003826

PATIENT
  Age: 30 Year
  Sex: Female

DRUGS (4)
  1. LAMICTAL [Suspect]
     Active Substance: LAMOTRIGINE
     Indication: PRODUCT USED FOR UNKNOWN INDICATION
  2. URBANYL (CLOBAZAM) (CLOBAZAM) [Concomitant]
  3. LEVOTHYROX [Suspect]
     Active Substance: LEVOTHYROXINE
     Indication: PRODUCT USED FOR UNKNOWN INDICATION
  4. CALPEROS /00944201/ (LEKOVIT CA) (COLECALCIFEROL, CALCIUM CARBONATE) [Concomitant]

REACTIONS (4)
  - Maternal exposure during pregnancy [None]
  - Epilepsy [None]
  - Premature delivery [None]
  - Congenital anomaly in offspring [None]

NARRATIVE: CASE EVENT DATE: 20110610
